FAERS Safety Report 6000008-9 (Version None)
Quarter: 2008Q4

REPORT INFORMATION
  Report Type: 
  Country: None (occurrence: None)
  Receive Date: 20081211
  Receipt Date: 20081211
  Transmission Date: 20090506
  Serious: No
  Sender: FDA-Public Use
  Company Number: None

PATIENT

DRUGS (1)
  1. ZICAM NASAL GEL ZINCUM GLUCONICUM 2X ZICAM LLC PHOENIX,AZ [Suspect]
     Indication: NASOPHARYNGITIS
     Dates: start: 20080525, end: 20080531

REACTIONS (2)
  - ANOSMIA [None]
  - DYSGEUSIA [None]
